FAERS Safety Report 18518214 (Version 1)
Quarter: 2020Q4

REPORT INFORMATION
  Report Type: Spontaneous
  Country: FR (occurrence: FR)
  Receive Date: 20201118
  Receipt Date: 20201118
  Transmission Date: 20210114
  Serious: Yes (Other)
  Sender: FDA-Public Use
  Company Number: FR-009507513-2011FRA006996

PATIENT
  Age: 36 Year
  Sex: Female

DRUGS (2)
  1. NEXPLANON [Suspect]
     Active Substance: ETONOGESTREL
     Dosage: 1 IMPLANT IN LEFT ARM (RIGHT-HANDED PATIENT)
     Route: 059
     Dates: end: 202007
  2. NEXPLANON [Suspect]
     Active Substance: ETONOGESTREL
     Dosage: 1 IMPLANT
     Dates: start: 202007

REACTIONS (12)
  - Multiple pregnancy [Unknown]
  - Pregnancy with implant contraceptive [Not Recovered/Not Resolved]
  - Unintended pregnancy [Not Recovered/Not Resolved]
  - Device deployment issue [Not Recovered/Not Resolved]
  - Dizziness [Unknown]
  - Device embolisation [Not Recovered/Not Resolved]
  - Complication associated with device [Not Recovered/Not Resolved]
  - Pulmonary embolism [Unknown]
  - Device issue [Not Recovered/Not Resolved]
  - Hypomenorrhoea [Unknown]
  - Suspected product quality issue [Unknown]
  - Pain in extremity [Unknown]

NARRATIVE: CASE EVENT DATE: 2020
